FAERS Safety Report 9404670 (Version 1)
Quarter: 2013Q3

REPORT INFORMATION
  Report Type: Report from Study
  Country: EC (occurrence: EC)
  Receive Date: 20130717
  Receipt Date: 20130717
  Transmission Date: 20140515
  Serious: Yes (Other)
  Sender: FDA-Public Use
  Company Number: PHHY2013EC075172

PATIENT
  Age: 88 Year
  Sex: Female

DRUGS (2)
  1. EXFORGE [Suspect]
     Indication: HYPERTENSION
     Dosage: 1 DF (160 MG VALS/ 5 MG AMLO), QD
     Route: 048
     Dates: start: 2009
  2. ATORVASTATIN [Concomitant]
     Indication: BLOOD CHOLESTEROL
     Dosage: UNK UKN, QD
     Route: 048
     Dates: start: 2009

REACTIONS (2)
  - Wrist fracture [Recovering/Resolving]
  - Fall [Recovering/Resolving]
